FAERS Safety Report 4841291-2 (Version None)
Quarter: 2005Q4

REPORT INFORMATION
  Report Type: 
  Country: None (occurrence: None)
  Receive Date: 20051130
  Receipt Date: 20051118
  Transmission Date: 20060501
  Serious: Yes (Other)
  Sender: FDA-Public Use
  Company Number: PHBS2005CN17021

PATIENT
  Age: 60 Year
  Sex: Female

DRUGS (1)
  1. DIOVAN [Suspect]
     Dosage: 80 MG/DAY
     Route: 048
     Dates: start: 20051024, end: 20051118

REACTIONS (3)
  - CHEST PAIN [None]
  - EXTRASYSTOLES [None]
  - PALPITATIONS [None]
